FAERS Safety Report 9192921 (Version 4)
Quarter: 2013Q2

REPORT INFORMATION
  Report Type: Report from Study
  Country: US (occurrence: US)
  Receive Date: 20130327
  Receipt Date: 20130409
  Transmission Date: 20140414
  Serious: No
  Sender: FDA-Public Use
  Company Number: US-VERTEX PHARMACEUTICALS INC.-2013-004030

PATIENT
  Age: 54 Year
  Sex: Female
  Weight: 99 kg

DRUGS (13)
  1. VX-950 (TELAPREVIR) [Suspect]
     Indication: HEPATITIS C
     Dosage: 750 MG, TID
     Route: 048
     Dates: start: 20130321
  2. PEGASYS [Suspect]
     Indication: HEPATITIS C
     Dosage: 180 ?G, WEEKLY
     Route: 058
     Dates: start: 20130321
  3. RIBAVIRIN [Suspect]
     Indication: HEPATITIS C
     Dosage: 400 MG, BID
     Dates: start: 20130321
  4. KLONOPIN [Concomitant]
     Dosage: 0.5 MG, UNK
  5. PROTONIX [Concomitant]
     Dosage: UNK
  6. ZOLOFT [Concomitant]
     Dosage: 50 MG, UNK
  7. ACYCLOVIR [Concomitant]
     Indication: EYE DISORDER
     Dosage: 200 MG, UNK
  8. VITAMIN E [Concomitant]
     Dosage: 1000 UNIT
  9. CALCIUM [Concomitant]
     Dosage: 500 TAB
  10. BABY ASPIRIN [Concomitant]
     Dosage: 81 MG, UNK
  11. COLACE [Concomitant]
  12. FISH OIL [Concomitant]
  13. LOMOTIL [Concomitant]
     Dosage: 2.5 MG, UNK

REACTIONS (14)
  - Dizziness [Recovered/Resolved]
  - Influenza like illness [Unknown]
  - Pyrexia [Unknown]
  - Tremor [Recovered/Resolved]
  - Chills [Recovered/Resolved]
  - Injection site erythema [Unknown]
  - Malaise [Unknown]
  - Asthenia [Unknown]
  - Fatigue [Unknown]
  - Rash [Unknown]
  - Haematochezia [Unknown]
  - Rectal haemorrhage [Unknown]
  - Anorectal discomfort [Unknown]
  - Proctalgia [Unknown]
